FAERS Safety Report 8170330 (Version 3)
Quarter: 2013Q3

REPORT INFORMATION
  Report Type: Spontaneous
  Country: US (occurrence: US)
  Receive Date: 20111006
  Receipt Date: 20130715
  Transmission Date: 20140515
  Serious: Yes (Life-Threatening, Other)
  Sender: FDA-Public Use
  Company Number: US-JNJFOC-20110911807

PATIENT
  Age: 15 Year
  Sex: Male
  Weight: 54.2 kg

DRUGS (7)
  1. REMICADE [Suspect]
     Indication: CROHN^S DISEASE
     Dosage: 300 MG
     Route: 042
     Dates: start: 20110202
  2. REMICADE [Suspect]
     Indication: CROHN^S DISEASE
     Dosage: 13TH INFUSION
     Route: 042
     Dates: start: 20110927, end: 20110927
  3. REMICADE [Suspect]
     Indication: CROHN^S DISEASE
     Route: 042
     Dates: start: 201001
  4. CLARITIN [Suspect]
     Indication: PREMEDICATION
     Route: 048
     Dates: start: 20110927
  5. PREDNISONE [Suspect]
     Indication: PREMEDICATION
     Route: 048
     Dates: start: 20110927
  6. TYLENOL [Suspect]
     Indication: PREMEDICATION
     Route: 048
     Dates: start: 20110927
  7. BENADRYL [Concomitant]
     Indication: PREMEDICATION
     Route: 065

REACTIONS (3)
  - Anaphylactic reaction [Recovered/Resolved]
  - Infusion related reaction [Recovered/Resolved]
  - Vitiligo [Unknown]
